FAERS Safety Report 9332379 (Version 1)
Quarter: 2013Q2

REPORT INFORMATION
  Report Type: Report from Study
  Country: AR (occurrence: AR)
  Receive Date: 20130606
  Receipt Date: 20130606
  Transmission Date: 20140414
  Serious: Yes (Other)
  Sender: FDA-Public Use
  Company Number: PHHY2012AR106856

PATIENT
  Sex: Female

DRUGS (6)
  1. GLIVEC [Suspect]
     Indication: CHRONIC MYELOID LEUKAEMIA
     Dosage: 400MG, DAILY
     Route: 048
     Dates: start: 200602
  2. GLIVEC [Suspect]
     Dosage: 400 MG, DAILY
     Route: 048
     Dates: start: 20100614
  3. GLIVEC [Suspect]
     Dosage: 400 MG, DAILY
     Route: 048
  4. CALCIUM [Concomitant]
     Dosage: 1 DF, BID
  5. CALCIUM [Concomitant]
     Dosage: 1 DF, QD
  6. MVI [Concomitant]
     Dosage: 1 DF, DAILY

REACTIONS (5)
  - Mobility decreased [Not Recovered/Not Resolved]
  - Spinal pain [Not Recovered/Not Resolved]
  - Intervertebral disc protrusion [Not Recovered/Not Resolved]
  - Liver disorder [Recovered/Resolved]
  - Vomiting [Not Recovered/Not Resolved]
